FAERS Safety Report 5931725-4 (Version None)
Quarter: 2008Q4

REPORT INFORMATION
  Report Type: 
  Country: None (occurrence: None)
  Receive Date: 20081027
  Receipt Date: 20081015
  Transmission Date: 20090506
  Serious: Yes (Hospitalization, Other)
  Sender: FDA-Public Use
  Company Number: FR-ROCHE-579246

PATIENT
  Sex: Female
  Weight: 50 kg

DRUGS (3)
  1. MYCOPHENOLATE MOFETIL [Suspect]
     Dosage: FREQUENCY: OD UNIT: MG
     Route: 048
     Dates: start: 20070115
  2. PROGRAF [Concomitant]
     Dates: start: 20070828
  3. SOLUPRED [Concomitant]
     Dates: start: 20070424

REACTIONS (2)
  - ACUTE PULMONARY OEDEMA [None]
  - HEAVY CHAIN DISEASE [None]
